FAERS Safety Report 6690604-8 (Version None)
Quarter: 2010Q2

REPORT INFORMATION
  Report Type: 
  Country: None (occurrence: None)
  Receive Date: 20100421
  Receipt Date: 20100419
  Transmission Date: 20101027
  Serious: Yes (Life-Threatening, Hospitalization)
  Sender: FDA-Public Use
  Company Number: B0648284A

PATIENT
  Age: 39 Year
  Sex: Female

DRUGS (2)
  1. AUGMENTIN '125' [Suspect]
     Indication: DRUG USE FOR UNKNOWN INDICATION
     Route: 048
     Dates: start: 20090101
  2. NON-STEROIDAL ANTI-INFLAMMATORY [Concomitant]
     Route: 065
     Dates: start: 20090101

REACTIONS (8)
  - ANAPHYLACTIC REACTION [None]
  - MALAISE [None]
  - OEDEMA PERIPHERAL [None]
  - OFF LABEL USE [None]
  - PAINFUL RESPIRATION [None]
  - PRURITUS [None]
  - SELF-MEDICATION [None]
  - URTICARIA [None]
